FAERS Safety Report 8267166-7 (Version None)
Quarter: 2012Q2

REPORT INFORMATION
  Report Type: 
  Country: None (occurrence: None)
  Receive Date: 20120404
  Receipt Date: 20120327
  Transmission Date: 20120825
  Serious: Yes (Life-Threatening, Hospitalization, Other)
  Sender: FDA-Public Use
  Company Number: AUR-APL-2012-01586

PATIENT
  Age: 78 Year
  Sex: Male

DRUGS (3)
  1. SIMVASTATIN [Suspect]
     Indication: PRODUCT USED FOR UNKNOWN INDICATION
     Dosage: UNKNOWN
  2. FUSIDIC ACID [Suspect]
     Indication: PNEUMONIA
     Dosage: UNKNOWN
  3. FLOXACILLIN SODIUM [Concomitant]

REACTIONS (6)
  - MOBILITY DECREASED [None]
  - PNEUMONIA [None]
  - POTENTIATING DRUG INTERACTION [None]
  - CHROMATURIA [None]
  - BLOOD CREATINE PHOSPHOKINASE INCREASED [None]
  - MYOPATHY [None]
